FAERS Safety Report 15392769 (Version 1)
Quarter: 2018Q3

REPORT INFORMATION
  Report Type: Spontaneous
  Country: US (occurrence: US)
  Receive Date: 20180911
  Receipt Date: 20180911
  Transmission Date: 20181010
  Serious: No
  Sender: FDA-Public Use
  Company Number: None

PATIENT
  Age: 48 Year
  Sex: Female

DRUGS (10)
  1. ATORVASTATIN 20MG [Concomitant]
     Active Substance: ATORVASTATIN
  2. SENNA/DSS 8.6?50MG [Concomitant]
  3. URSODIOL 250MG [Concomitant]
  4. ASPRIN 81MG EC TAB [Concomitant]
  5. OMEPRA/BICAR 40?1100 [Concomitant]
  6. ZANTAC [Concomitant]
     Active Substance: RANITIDINE HYDROCHLORIDE
  7. RIFAMPIN 150MG [Concomitant]
  8. SYNTHROID 137MCG [Concomitant]
  9. CALTRATE 600 CHW +D PLUS [Concomitant]
  10. OCALIVA [Suspect]
     Active Substance: OBETICHOLIC ACID
     Indication: PRIMARY BILIARY CHOLANGITIS
     Route: 048
     Dates: start: 20171212

REACTIONS (2)
  - Pruritus [None]
  - Blood parathyroid hormone abnormal [None]

NARRATIVE: CASE EVENT DATE: 20180907
